FAERS Safety Report 7519814-4 (Version None)
Quarter: 2011Q2

REPORT INFORMATION
  Report Type: 
  Country: None (occurrence: None)
  Receive Date: 20110602
  Receipt Date: 20110519
  Transmission Date: 20111010
  Serious: Yes (Hospitalization)
  Sender: FDA-Public Use
  Company Number: IT-UCBSA-029334

PATIENT
  Sex: Male

DRUGS (4)
  1. VIMPAT [Suspect]
     Indication: EPILEPSY
     Route: 048
     Dates: start: 20100630, end: 20110225
  2. DEPAKENE [Concomitant]
     Route: 048
  3. LYRICA [Concomitant]
     Route: 048
  4. CIALIS [Concomitant]
     Route: 048

REACTIONS (2)
  - PETECHIAE [None]
  - THROMBOCYTOPENIA [None]
